FAERS Safety Report 9236907 (Version 1)
Quarter: 2013Q2

REPORT INFORMATION
  Report Type: Spontaneous
  Country: GB (occurrence: None)
  Receive Date: 20130415
  Receipt Date: 20130415
  Transmission Date: 20140414
  Serious: Yes (Hospitalization)
  Sender: FDA-Public Use
  Company Number: GER/UKI/13/0028978

PATIENT
  Age: 56 Year
  Sex: Female
  Weight: 70 kg

DRUGS (2)
  1. OMEPRAZOLE (OMEPRAZOLE) [Suspect]
     Indication: GASTROENTERITIS
     Route: 048
     Dates: start: 20130117, end: 20130402
  2. DOMPERIDONE (DOMPEDIDONE) [Concomitant]

REACTIONS (4)
  - Decreased appetite [None]
  - Electrolyte imbalance [None]
  - Lethargy [None]
  - Asthenia [None]
